FAERS Safety Report 5890771-X (Version None)
Quarter: 2008Q3

REPORT INFORMATION
  Report Type: 
  Country: None (occurrence: None)
  Receive Date: 20080918
  Receipt Date: 20080905
  Transmission Date: 20090109
  Serious: Yes (Hospitalization)
  Sender: FDA-Public Use
  Company Number: 08P-020-0474920-00

PATIENT
  Age: 8 Month
  Sex: Female

DRUGS (2)
  1. SYNAGIS [Suspect]
     Indication: DRUG USE FOR UNKNOWN INDICATION
     Dosage: ONLY RECEIVED ONE INJECTION (ONCE)
     Route: 030
     Dates: start: 20080829, end: 20080829
  2. CEFUROXIME [Concomitant]

REACTIONS (1)
  - FEBRILE CONVULSION [None]
